FAERS Safety Report 20633293 (Version 1)
Quarter: 2022Q1

REPORT INFORMATION
  Report Type: Report from Study
  Country: CA (occurrence: CA)
  Receive Date: 20220324
  Receipt Date: 20220324
  Transmission Date: 20220423
  Serious: Yes (Other)
  Sender: FDA-Public Use
  Company Number: CA-PFIZER INC-202200438293

PATIENT
  Age: 29 Year
  Sex: Male

DRUGS (6)
  1. METHOTREXATE SODIUM [Suspect]
     Active Substance: METHOTREXATE SODIUM
     Dosage: 200 MG
     Route: 065
  2. CYCLOSPORINE [Suspect]
     Active Substance: CYCLOSPORINE
     Route: 065
  3. CIMZIA [Suspect]
     Active Substance: CERTOLIZUMAB PEGOL
     Dosage: 400 MG, MONTHLY
     Route: 065
  4. CELEBREX [Concomitant]
     Active Substance: CELECOXIB
     Route: 065
  5. IBUPROFEN [Concomitant]
     Active Substance: IBUPROFEN
     Route: 065
  6. SULFASALAZINE [Concomitant]
     Active Substance: SULFASALAZINE
     Dosage: UNK, 2X/DAY
     Route: 065

REACTIONS (8)
  - Alopecia [Not Recovered/Not Resolved]
  - Axial spondyloarthritis [Not Recovered/Not Resolved]
  - Drug intolerance [Not Recovered/Not Resolved]
  - Juvenile idiopathic arthritis [Not Recovered/Not Resolved]
  - Nausea [Not Recovered/Not Resolved]
  - Peripheral spondyloarthritis [Not Recovered/Not Resolved]
  - Psoriasis [Not Recovered/Not Resolved]
  - Vomiting [Not Recovered/Not Resolved]
